FAERS Safety Report 5530727-X (Version None)
Quarter: 2007Q4

REPORT INFORMATION
  Report Type: 
  Country: None (occurrence: None)
  Receive Date: 20071128
  Receipt Date: 20071128
  Transmission Date: 20080405
  Serious: No
  Sender: FDA-Public Use
  Company Number: None

PATIENT
  Sex: Female
  Weight: 107.9561 kg

DRUGS (2)
  1. BUDEPRION XL 300 MG TEVA [Suspect]
     Indication: MAJOR DEPRESSION
     Dosage: 30 TABLETS 1 DAILY
     Dates: start: 20070301, end: 20070901
  2. BUDEPRION XL 300 MG WATSON [Suspect]
     Dosage: 30 TABLETS 1 DAILY

REACTIONS (2)
  - ILL-DEFINED DISORDER [None]
  - THERAPEUTIC RESPONSE UNEXPECTED WITH DRUG SUBSTITUTION [None]
